FAERS Safety Report 4449589-7 (Version None)
Quarter: 2004Q3

REPORT INFORMATION
  Report Type: 
  Country: None (occurrence: None)
  Receive Date: 20040913
  Receipt Date: 20040831
  Transmission Date: 20050211
  Serious: Yes (Hospitalization)
  Sender: FDA-Public Use
  Company Number: HQWYE752601SEP04

PATIENT
  Age: 67 Year
  Sex: Female

DRUGS (4)
  1. CORDARONE [Suspect]
     Indication: ATRIAL FIBRILLATION
     Dates: start: 20000401
  2. ACENOCOUMAROL [Concomitant]
  3. FLECAINIDE ACETATE [Concomitant]
  4. LERCANIDIPINE [Concomitant]

REACTIONS (9)
  - ANOREXIA [None]
  - BRADYCARDIA [None]
  - HYPEROXALURIA [None]
  - HYPOTHYROIDISM [None]
  - NAUSEA [None]
  - NEPHRITIS INTERSTITIAL [None]
  - RENAL ATROPHY [None]
  - RENAL FAILURE CHRONIC [None]
  - WEIGHT DECREASED [None]
